FAERS Safety Report 15968650 (Version 1)
Quarter: 2019Q1

REPORT INFORMATION
  Report Type: Spontaneous
  Country: FR (occurrence: FR)
  Receive Date: 20190215
  Receipt Date: 20190215
  Transmission Date: 20190418
  Serious: Yes (Hospitalization)
  Sender: FDA-Public Use
  Company Number: PHHY2019FR033733

PATIENT
  Age: 80 Year
  Sex: Male
  Weight: 83 kg

DRUGS (3)
  1. TEGRETOL [Suspect]
     Active Substance: CARBAMAZEPINE
     Indication: TRIGEMINAL NEURALGIA
     Dosage: 600 MG, UNK
     Route: 048
     Dates: start: 2015
  2. TRILEPTAL [Interacting]
     Active Substance: OXCARBAZEPINE
     Indication: TRIGEMINAL NEURALGIA
     Dosage: 450 MG, UNK
     Route: 048
     Dates: start: 2015
  3. BRILIQUE [Interacting]
     Active Substance: TICAGRELOR
     Indication: CORONARY ARTERY THROMBOSIS
     Dosage: 180 MG, UNK
     Route: 048
     Dates: start: 20181216, end: 20181216

REACTIONS (3)
  - Vascular stent thrombosis [Recovered/Resolved]
  - Drug interaction [Recovered/Resolved]
  - Drug ineffective [Recovered/Resolved]

NARRATIVE: CASE EVENT DATE: 20181217
